FAERS Safety Report 7371991-4 (Version None)
Quarter: 2011Q1

REPORT INFORMATION
  Report Type: 
  Country: None (occurrence: None)
  Receive Date: 20110324
  Receipt Date: 20110310
  Transmission Date: 20110831
  Serious: Yes (Other)
  Sender: FDA-Public Use
  Company Number: PHHY2010DE67549

PATIENT
  Sex: Female

DRUGS (5)
  1. LEVOTHYROXINE SODIUM [Concomitant]
  2. AROMASIN [Concomitant]
  3. NUTRITION SUPPLEMENTS [Concomitant]
  4. ACLASTA [Suspect]
     Indication: OSTEOPOROSIS
     Dosage: 5 MG, UNK
     Route: 042
     Dates: start: 20080201
  5. ACLASTA [Suspect]
     Dosage: 5 MG
     Route: 042
     Dates: start: 20101007

REACTIONS (6)
  - INFLUENZA [None]
  - OSTEOPOROSIS [None]
  - METASTASIS [None]
  - FEELING ABNORMAL [None]
  - BONE PAIN [None]
  - ASTHENIA [None]
